FAERS Safety Report 4554650-2 (Version None)
Quarter: 2005Q1

REPORT INFORMATION
  Report Type: 
  Country: None (occurrence: None)
  Receive Date: 20041228
  Receipt Date: 20040511
  Transmission Date: 20050727
  Serious: No
  Sender: FDA-Public Use
  Company Number: ALMO2004029

PATIENT
  Age: 22 Year
  Sex: Female

DRUGS (2)
  1. AXERT [Suspect]
     Dosage: 12.5 MG DAILY
  2. ZOLOFT [Concomitant]

REACTIONS (1)
  - VISION BLURRED [None]
